FAERS Safety Report 8060061-8 (Version None)
Quarter: 2012Q1

REPORT INFORMATION
  Report Type: 
  Country: None (occurrence: None)
  Receive Date: 20120120
  Receipt Date: 20120119
  Transmission Date: 20120608
  Serious: Yes (Hospitalization, Other)
  Sender: FDA-Public Use
  Company Number: US-BAYER-2011-041991

PATIENT
  Age: 55 Year
  Sex: Female

DRUGS (4)
  1. BETASERON [Suspect]
     Dosage: 8 MIU, QOD
     Route: 058
  2. BETASERON [Suspect]
     Dosage: 6 MIU, QOD
     Route: 058
  3. BETASERON [Suspect]
     Indication: MULTIPLE SCLEROSIS
     Dosage: 6 MIU, QOD
     Route: 058
     Dates: start: 20101015
  4. BETASERON [Suspect]
     Dosage: 8 MIU, QOD
     Route: 058
     Dates: end: 20111216

REACTIONS (16)
  - VAGINAL HAEMORRHAGE [None]
  - POST PROCEDURAL HAEMORRHAGE [None]
  - HYPOAESTHESIA [None]
  - URINARY TRACT INFECTION [None]
  - ABDOMINAL PAIN [None]
  - ULCER HAEMORRHAGE [None]
  - BRONCHITIS [None]
  - MUSCLE TWITCHING [None]
  - PAIN IN EXTREMITY [None]
  - URINARY RETENTION [None]
  - PNEUMONIA [None]
  - CONVULSION [None]
  - INJECTION SITE HAEMORRHAGE [None]
  - TOOTH EXTRACTION [None]
  - WOUND HAEMORRHAGE [None]
  - TREMOR [None]
